FAERS Safety Report 20279330 (Version 14)
Quarter: 2025Q1

REPORT INFORMATION
  Report Type: Report from Study
  Country: CA (occurrence: CA)
  Receive Date: 20220103
  Receipt Date: 20250307
  Transmission Date: 20250408
  Serious: Yes (Hospitalization, Other)
  Sender: JOHNSON AND JOHNSON
  Company Number: CA-JNJFOC-20211266712

PATIENT
  Age: 75 Year
  Sex: Male
  Weight: 61.5 kg

DRUGS (9)
  1. REMICADE [Suspect]
     Active Substance: INFLIXIMAB
     Indication: Ankylosing spondylitis
     Route: 041
  2. REMICADE [Suspect]
     Active Substance: INFLIXIMAB
     Route: 042
  3. REMICADE [Suspect]
     Active Substance: INFLIXIMAB
     Route: 041
     Dates: start: 20070328
  4. REMICADE [Suspect]
     Active Substance: INFLIXIMAB
     Dosage: EXPIRY DATE: 01-MAR-2024?PATIENT SWITCHED OVER TO INFLECTRA.
     Route: 041
     Dates: start: 20200920, end: 20220420
  5. REMICADE [Suspect]
     Active Substance: INFLIXIMAB
     Dosage: MOST RECENT DOSE 16-SEP-2024
     Route: 041
  6. REMICADE [Suspect]
     Active Substance: INFLIXIMAB
     Route: 041
  7. REMICADE [Suspect]
     Active Substance: INFLIXIMAB
     Route: 041
  8. REMICADE [Suspect]
     Active Substance: INFLIXIMAB
     Route: 041
     Dates: start: 20070328
  9. COVID-19 VACCINE [Concomitant]
     Indication: Prophylaxis
     Route: 065

REACTIONS (12)
  - Thrombosis [Unknown]
  - Limb injury [Unknown]
  - Fall [Unknown]
  - Wound [Not Recovered/Not Resolved]
  - Pneumonia [Recovering/Resolving]
  - Rhabdomyolysis [Unknown]
  - Inappropriate schedule of product administration [Unknown]
  - Arthritis [Unknown]
  - Decubitus ulcer [Unknown]
  - Trigger finger [Unknown]
  - Localised infection [Unknown]
  - Influenza [Unknown]

NARRATIVE: CASE EVENT DATE: 20211222
